FAERS Safety Report 14955558 (Version 1)
Quarter: 2018Q2

REPORT INFORMATION
  Report Type: Spontaneous
  Country: FR (occurrence: FR)
  Receive Date: 20180531
  Receipt Date: 20180531
  Transmission Date: 20180711
  Serious: Yes (Other)
  Sender: FDA-Public Use
  Company Number: FR-MERCK KGAA-2048757

PATIENT
  Age: 43 Year
  Sex: Female

DRUGS (1)
  1. NOVOTHYROX [Suspect]
     Active Substance: LEVOTHYROXINE SODIUM
     Indication: POST PROCEDURAL HYPOTHYROIDISM
     Dates: end: 201710

REACTIONS (23)
  - Alopecia [Recovered/Resolved]
  - Middle insomnia [Recovered/Resolved]
  - Anxiety [Recovered/Resolved]
  - Bone disorder [Recovered/Resolved]
  - Social avoidant behaviour [Recovered/Resolved]
  - Initial insomnia [Recovered/Resolved]
  - Arrhythmia [Recovered/Resolved]
  - Dyspnoea exertional [Recovered/Resolved]
  - Asthma [Recovered/Resolved]
  - Weight increased [Recovered/Resolved]
  - Dyspnoea [Recovered/Resolved]
  - Irritability [Recovered/Resolved]
  - Gastrointestinal pain [Recovered/Resolved]
  - Apathy [Recovered/Resolved]
  - Impaired work ability [Recovered/Resolved]
  - Mood altered [Recovered/Resolved]
  - Fatigue [Recovered/Resolved]
  - Impatience [Recovered/Resolved]
  - Asthenia [Recovered/Resolved]
  - Decreased interest [Recovered/Resolved]
  - Abdominal pain lower [Recovered/Resolved]
  - Personal relationship issue [Recovered/Resolved]
  - Muscle spasms [Recovered/Resolved]

NARRATIVE: CASE EVENT DATE: 201706
